FAERS Safety Report 24896819 (Version 2)
Quarter: 2025Q1

REPORT INFORMATION
  Report Type: Report from Study
  Country: US (occurrence: US)
  Receive Date: 20250128
  Receipt Date: 20250210
  Transmission Date: 20250408
  Serious: No
  Sender: ASTELLAS
  Company Number: US-ASTELLAS-2024-AER-022624

PATIENT
  Age: 45 Year
  Sex: Female

DRUGS (1)
  1. FEZOLINETANT [Suspect]
     Active Substance: FEZOLINETANT
     Indication: Liver function test increased
     Dosage: 45 MG ONCE DAILY AT NIGHT
     Route: 048
     Dates: start: 20240119, end: 20240807

REACTIONS (3)
  - Hepatic enzyme increased [Unknown]
  - Condition aggravated [Unknown]
  - Off label use [Unknown]

NARRATIVE: CASE EVENT DATE: 20240119
